FAERS Safety Report 24293549 (Version 1)
Quarter: 2024Q3

REPORT INFORMATION
  Report Type: Spontaneous
  Country: US (occurrence: None)
  Receive Date: 20240906
  Receipt Date: 20240906
  Transmission Date: 20241016
  Serious: No
  Sender: DOMPE FARMACEUTICI
  Company Number: US-FARMAPROD-202402-0393

PATIENT
  Sex: Female

DRUGS (2)
  1. OXERVATE [Suspect]
     Active Substance: CENEGERMIN-BKBJ
     Indication: Product used for unknown indication
     Dosage: UNKNOWN
     Route: 047
  2. ARTIFICIAL TEARS [Concomitant]

REACTIONS (3)
  - Product dose omission issue [Unknown]
  - Eye pain [Unknown]
  - Ocular discomfort [Unknown]
